FAERS Safety Report 5416501-3 (Version None)
Quarter: 2007Q3

REPORT INFORMATION
  Report Type: 
  Country: None (occurrence: None)
  Receive Date: 20070816
  Receipt Date: 20070807
  Transmission Date: 20080115
  Serious: Yes (Death)
  Sender: FDA-Public Use
  Company Number: JP-BRISTOL-MYERS SQUIBB COMPANY-13852108

PATIENT
  Age: 50 Year
  Sex: Male

DRUGS (9)
  1. ARIPIPRAZOLE [Suspect]
     Indication: SCHIZOPHRENIA
     Dosage: THE DRUG WAS ALSO TAKEN 15MG/DAY FROM UNKNOWN SART DATE TO 26-JUN-2007 WHICH WAS DECREASED TO 12MG.
     Route: 048
     Dates: start: 20070627, end: 20070630
  2. ZOTEPINE [Suspect]
     Indication: SCHIZOPHRENIA
     Route: 048
     Dates: start: 20070608, end: 20070630
  3. DIAZEPAM [Concomitant]
     Indication: ANXIETY
     Route: 048
     Dates: end: 20070630
  4. FEXOFENADINE HCL [Concomitant]
     Indication: RHINITIS ALLERGIC
     Route: 048
     Dates: end: 20070630
  5. FLUNITRAZEPAM [Concomitant]
     Indication: INSOMNIA
     Route: 048
     Dates: end: 20070629
  6. SOLIFENACIN SUCCINATE [Concomitant]
     Indication: HYPERTONIC BLADDER
     Route: 048
     Dates: end: 20070621
  7. LEVOFLOXACIN [Concomitant]
     Indication: URINARY TRACT INFECTION
     Route: 048
     Dates: start: 20070620, end: 20070625
  8. TOLTERODINE TARTRATE [Concomitant]
     Indication: HYPERTONIC BLADDER
     Route: 048
     Dates: start: 20070622, end: 20070629
  9. FLAVOXATE HCL [Concomitant]
     Indication: HYPERTONIC BLADDER
     Dosage: UNK-19JUN07 400MG 20JUN07-21JUN07 200MG 22JUN07-24JUN07 200MG 25JUN07 400MG 26JUN07-30JUN07 200MG
     Route: 048
     Dates: start: 20070627, end: 20070630

REACTIONS (1)
  - SUDDEN DEATH [None]
